FAERS Safety Report 8347289-4 (Version None)
Quarter: 2012Q2

REPORT INFORMATION
  Report Type: 
  Country: None (occurrence: None)
  Receive Date: 20120509
  Receipt Date: 20120501
  Transmission Date: 20120825
  Serious: Yes (Hospitalization, Other)
  Sender: FDA-Public Use
  Company Number: US-ASTRAZENECA-2011SE62089

PATIENT
  Age: 63 Year
  Sex: Female
  Weight: 127 kg

DRUGS (14)
  1. NEXIUM [Suspect]
     Indication: GASTROOESOPHAGEAL REFLUX DISEASE
     Route: 048
  2. AMBIEN [Concomitant]
  3. PLAVIX [Concomitant]
  4. VICON FORTE [Concomitant]
  5. VITAMIN TAB [Concomitant]
  6. ZYLOPRIM [Concomitant]
  7. ONGLYZA [Concomitant]
  8. TOMA [Concomitant]
  9. CYMBALTA [Concomitant]
  10. ZOCOR [Concomitant]
  11. PRILOSEC [Suspect]
     Route: 048
  12. ALLOPURINOL [Concomitant]
  13. SIMVASTATIN [Concomitant]
  14. LASIX [Concomitant]

REACTIONS (5)
  - DIABETES MELLITUS [None]
  - OFF LABEL USE [None]
  - HEART RATE IRREGULAR [None]
  - POOR PERIPHERAL CIRCULATION [None]
  - MUSCULOSKELETAL DISORDER [None]
